FAERS Safety Report 5923474-3 (Version None)
Quarter: 2008Q4

REPORT INFORMATION
  Report Type: 
  Country: None (occurrence: None)
  Receive Date: 20081015
  Receipt Date: 20081003
  Transmission Date: 20090506
  Serious: Yes (Hospitalization)
  Sender: FDA-Public Use
  Company Number: WAES 0809USA01998

PATIENT
  Age: 42 Year
  Sex: Female
  Weight: 53.978 kg

DRUGS (9)
  1. ISENTRESS [Suspect]
     Indication: HIV INFECTION
     Dosage: 400 MG/Q12H/PO
     Route: 048
     Dates: start: 20080805, end: 20080910
  2. DARUNAVIR UNK [Suspect]
     Indication: HIV INFECTION
     Dosage: 600 MG/Q12H/PO
     Route: 048
     Dates: start: 20080805, end: 20080828
  3. ETRAVIRINE UNK [Suspect]
     Indication: HIV INFECTION
     Dosage: 200 MG/Q12H/PO
     Route: 048
     Dates: start: 20080805, end: 20080910
  4. BACTRIM DS [Concomitant]
  5. LOMOTIL [Concomitant]
  6. TRUVADA [Concomitant]
  7. ZOFRAN [Concomitant]
  8. AZITHROMYCIN [Concomitant]
  9. ZIDOVUDINE [Concomitant]

REACTIONS (28)
  - ANAEMIA [None]
  - APPETITE DISORDER [None]
  - BLOOD POTASSIUM DECREASED [None]
  - BLOOD SODIUM DECREASED [None]
  - CACHEXIA [None]
  - DRUG HYPERSENSITIVITY [None]
  - DYSPEPSIA [None]
  - DYSPNOEA EXERTIONAL [None]
  - ENTEROCOCCAL INFECTION [None]
  - FUNGAL INFECTION [None]
  - GASTROOESOPHAGEAL REFLUX DISEASE [None]
  - HEPATIC STEATOSIS [None]
  - HEPATITIS C [None]
  - HEPATOMEGALY [None]
  - HEPATOTOXICITY [None]
  - HYPOAESTHESIA [None]
  - HYPOPHAGIA [None]
  - IMMUNE RECONSTITUTION SYNDROME [None]
  - INTERNATIONAL NORMALISED RATIO INCREASED [None]
  - LICHENOID KERATOSIS [None]
  - ODYNOPHAGIA [None]
  - OROPHARYNGEAL PAIN [None]
  - PANCREATITIS [None]
  - PENICILLIOSIS [None]
  - PLATELET COUNT DECREASED [None]
  - PNEUMOCYSTIS JIROVECI PNEUMONIA [None]
  - RENAL FAILURE ACUTE [None]
  - STREPTOCOCCAL INFECTION [None]
